FAERS Safety Report 5304330-0 (Version None)
Quarter: 2007Q2

REPORT INFORMATION
  Report Type: 
  Country: None (occurrence: None)
  Receive Date: 20070423
  Receipt Date: 20070410
  Transmission Date: 20071010
  Serious: Yes (Hospitalization)
  Sender: FDA-Public Use
  Company Number: PHEH2007US04925

PATIENT
  Age: 67 Year
  Sex: Female

DRUGS (9)
  1. ZELNORM [Suspect]
     Indication: ABDOMINAL PAIN
     Dosage: 6 MG, BID
     Dates: end: 20070301
  2. PRINZIDE [Concomitant]
  3. DOXEPIN HCL [Concomitant]
  4. PREVACID [Concomitant]
  5. DARVOCET [Concomitant]
  6. VYTORIN [Concomitant]
  7. SKELAXIN [Concomitant]
  8. PROGESTERONE W/ESTROGENS/ [Concomitant]
  9. GLUCOSAMINE W/CHONDROITIN [Concomitant]

REACTIONS (1)
  - ABDOMINAL PAIN [None]
